FAERS Safety Report 4979533-5 (Version None)
Quarter: 2006Q2

REPORT INFORMATION
  Report Type: 
  Country: None (occurrence: None)
  Receive Date: 20060418
  Receipt Date: 20060407
  Transmission Date: 20061013
  Serious: Yes (Hospitalization)
  Sender: FDA-Public Use
  Company Number: GB-2005-014960

PATIENT
  Age: 26 Year
  Sex: Female
  Weight: 82.5 kg

DRUGS (4)
  1. LEUKINE [Suspect]
     Indication: CROHN'S DISEASE
     Dosage: 6 UG/KG, 1X/DAY, SUBCUTANEOUS
     Route: 058
     Dates: start: 20050510, end: 20050704
  2. PARACETAMOL [Concomitant]
  3. CHLORPHENAMINE (CHLORPHENAMINE) [Concomitant]
  4. CALAMINE LOTION (PHENOL, LIQUEFIED, CALAMINE, BENTONITE, GLYCEROL) [Concomitant]

REACTIONS (6)
  - ABORTION SPONTANEOUS [None]
  - ANAEMIA [None]
  - DRUG EXPOSURE DURING PREGNANCY [None]
  - FALL [None]
  - OVARIAN CYST [None]
  - UTERINE INFECTION [None]
